FAERS Safety Report 12160382 (Version 1)
Quarter: 2016Q1

REPORT INFORMATION
  Report Type: Spontaneous
  Country: US (occurrence: US)
  Receive Date: 20160308
  Receipt Date: 20160308
  Transmission Date: 20160526
  Serious: No
  Sender: FDA-Public Use
  Company Number: US-LEO PHARMA-240537

PATIENT
  Sex: Female

DRUGS (1)
  1. PICATO [Suspect]
     Active Substance: INGENOL MEBUTATE
     Indication: ACTINIC KERATOSIS
     Route: 061

REACTIONS (5)
  - Application site pain [Unknown]
  - Application site dryness [Unknown]
  - Application site exfoliation [Unknown]
  - Disease recurrence [Unknown]
  - Inappropriate schedule of drug administration [Unknown]
